FAERS Safety Report 24983246 (Version 1)
Quarter: 2025Q1

REPORT INFORMATION
  Report Type: Report from Study
  Country: CA (occurrence: CA)
  Receive Date: 20250218
  Receipt Date: 20250218
  Transmission Date: 20250408
  Serious: Yes (Other)
  Sender: ABBVIE
  Company Number: CA-ABBVIE-6133561

PATIENT
  Age: 85 Year
  Sex: Male

DRUGS (1)
  1. LUPRON [Suspect]
     Active Substance: LEUPROLIDE ACETATE
     Indication: Prostate cancer
     Dosage: FORM STRENGTH: 30 MG , PRE-FILLED SYRINGE
     Route: 065
     Dates: start: 20230802

REACTIONS (3)
  - Bone cancer [Unknown]
  - Weight decreased [Unknown]
  - Body height decreased [Unknown]

NARRATIVE: CASE EVENT DATE: 20240101
